FAERS Safety Report 24723889 (Version 1)
Quarter: 2024Q4

REPORT INFORMATION
  Report Type: Spontaneous
  Country: JP (occurrence: JP)
  Receive Date: 20241211
  Receipt Date: 20241211
  Transmission Date: 20250115
  Serious: Yes (Hospitalization)
  Sender: EISAI
  Company Number: JP-Eisai-202411656_DVG_P_1

PATIENT
  Age: 82 Year
  Sex: Female

DRUGS (1)
  1. LEMBOREXANT [Suspect]
     Active Substance: LEMBOREXANT
     Indication: Insomnia
     Dosage: DOSE AND FREQUENCY UNKNOWN EMBOREXANT WA
     Route: 048

REACTIONS (2)
  - Hyponatraemia [Recovering/Resolving]
  - Delirium [Recovering/Resolving]
